FAERS Safety Report 19978569 (Version 1)
Quarter: 2021Q4

REPORT INFORMATION
  Report Type: Spontaneous
  Country: US (occurrence: US)
  Receive Date: 20211020
  Receipt Date: 20211020
  Transmission Date: 20220303
  Serious: Yes (Other)
  Sender: FDA-Public Use
  Company Number: US-GLAXOSMITHKLINE- US2021GSK215823

PATIENT
  Sex: Female

DRUGS (10)
  1. RANITIDINE HYDROCHLORIDE [Suspect]
     Active Substance: RANITIDINE HYDROCHLORIDE
     Indication: Gastrooesophageal reflux disease
     Dosage: 150 MG, 4 TIMES/DAY
     Route: 065
     Dates: start: 2011, end: 2016
  2. RANITIDINE HYDROCHLORIDE [Suspect]
     Active Substance: RANITIDINE HYDROCHLORIDE
     Dosage: 150 MG, 4 TIMES/DAY
     Route: 065
     Dates: start: 2011, end: 2016
  3. RANITIDINE HYDROCHLORIDE [Suspect]
     Active Substance: RANITIDINE HYDROCHLORIDE
     Indication: Gastrooesophageal reflux disease
     Dosage: 150 MG, 4 TIMES/DAY
     Route: 065
     Dates: start: 2011, end: 2016
  4. RANITIDINE HYDROCHLORIDE [Suspect]
     Active Substance: RANITIDINE HYDROCHLORIDE
     Dosage: 150 MG,4 TIMES/DAY
     Route: 065
     Dates: start: 2011, end: 2016
  5. ZANTAC [Suspect]
     Active Substance: RANITIDINE HYDROCHLORIDE
     Indication: Gastrooesophageal reflux disease
     Dosage: 150 MG,4X DAILY
     Route: 065
     Dates: start: 2011, end: 2016
  6. ZANTAC [Suspect]
     Active Substance: RANITIDINE HYDROCHLORIDE
     Dosage: 150 MG,4X DAILY
     Route: 065
     Dates: start: 2011, end: 2016
  7. RANITIDINE [Suspect]
     Active Substance: RANITIDINE
     Indication: Gastrooesophageal reflux disease
     Dosage: 150 MG, 4X DAILY
     Route: 065
     Dates: start: 2011, end: 2016
  8. RANITIDINE [Suspect]
     Active Substance: RANITIDINE
     Dosage: 150 MG, 4 TIMES/DAY
     Route: 065
     Dates: start: 2011, end: 2016
  9. RANITIDINE HYDROCHLORIDE [Suspect]
     Active Substance: RANITIDINE HYDROCHLORIDE
     Indication: Gastrooesophageal reflux disease
     Dosage: 150 MG, 4 TIMES/DAY
     Route: 065
     Dates: start: 2011, end: 2016
  10. RANITIDINE HYDROCHLORIDE [Suspect]
     Active Substance: RANITIDINE HYDROCHLORIDE
     Dosage: 150 MG, 4 TIMES/DAY
     Route: 065
     Dates: start: 2011, end: 2016

REACTIONS (1)
  - Breast cancer [Unknown]
